FAERS Safety Report 5897516-8 (Version None)
Quarter: 2008Q3

REPORT INFORMATION
  Report Type: 
  Country: None (occurrence: None)
  Receive Date: 20080924
  Receipt Date: 20080924
  Transmission Date: 20090109
  Serious: No
  Sender: FDA-Public Use
  Company Number: None

PATIENT
  Age: 62 Year
  Sex: Female

DRUGS (2)
  1. NYSTATIN [Suspect]
     Dates: start: 20060711, end: 20060908
  2. CEFTIN [Suspect]
     Dates: start: 20060711, end: 20060721

REACTIONS (16)
  - ACIDOSIS [None]
  - ANAEMIA [None]
  - ANURIA [None]
  - ASCITES [None]
  - BILIARY DILATATION [None]
  - BRONCHOPULMONARY ASPERGILLOSIS [None]
  - COAGULOPATHY [None]
  - HEPATIC ATROPHY [None]
  - HEPATIC FAILURE [None]
  - HYPOTENSION [None]
  - LIVER INJURY [None]
  - PLEURAL EFFUSION [None]
  - PNEUMONIA NECROTISING [None]
  - PORTAL VEIN THROMBOSIS [None]
  - PULMONARY OEDEMA [None]
  - SEPSIS [None]
